FAERS Safety Report 15446446 (Version 1)
Quarter: 2018Q3

REPORT INFORMATION
  Report Type: Report from Study
  Country: US (occurrence: US)
  Receive Date: 20180928
  Receipt Date: 20180928
  Transmission Date: 20181010
  Serious: No
  Sender: FDA-Public Use
  Company Number: US-AMGEN-USASP2018093178

PATIENT
  Age: 75 Year
  Sex: Female

DRUGS (5)
  1. FIORICET [Concomitant]
     Active Substance: ACETAMINOPHEN\BUTALBITAL\CAFFEINE
     Indication: BACK DISORDER
  2. IBUPROFEN. [Concomitant]
     Active Substance: IBUPROFEN
  3. PROLIA [Suspect]
     Active Substance: DENOSUMAB
     Indication: OSTEOPOROSIS POSTMENOPAUSAL
     Dosage: UNK
     Route: 065
  4. LIPITOR [Concomitant]
     Active Substance: ATORVASTATIN CALCIUM
  5. PROZAC [Concomitant]
     Active Substance: FLUOXETINE HYDROCHLORIDE

REACTIONS (6)
  - Temporomandibular joint syndrome [Unknown]
  - Oral mucosal exfoliation [Unknown]
  - Tooth infection [Unknown]
  - Lip blister [Unknown]
  - Drug hypersensitivity [Unknown]
  - Tooth extraction [Unknown]

NARRATIVE: CASE EVENT DATE: 2018
